FAERS Safety Report 17622692 (Version 4)
Quarter: 2020Q4

REPORT INFORMATION
  Report Type: Report from Study
  Country: US (occurrence: US)
  Receive Date: 20200403
  Receipt Date: 20201222
  Transmission Date: 20210113
  Serious: Yes (Other)
  Sender: FDA-Public Use
  Company Number: NVSC2020US083811

PATIENT
  Sex: Male

DRUGS (2)
  1. COSENTYX [Suspect]
     Active Substance: SECUKINUMAB
     Indication: PSORIATIC ARTHROPATHY
     Dosage: 150 MG, QW (BENEATH THE SKIN, USUALLY VIA INJECTION)
     Route: 058
  2. METHOTREXATE SODIUM. [Suspect]
     Active Substance: METHOTREXATE SODIUM
     Indication: PRODUCT USED FOR UNKNOWN INDICATION
     Dosage: UNK UNK, UNKNOWN
     Route: 065

REACTIONS (10)
  - Limb injury [Unknown]
  - Upper-airway cough syndrome [Unknown]
  - Joint stiffness [Unknown]
  - Arthritis [Unknown]
  - Pulmonary congestion [Unknown]
  - Arthralgia [Unknown]
  - Psoriasis [Unknown]
  - Cartilage injury [Unknown]
  - Skin disorder [Unknown]
  - Cough [Unknown]
